FAERS Safety Report 11711737 (Version 1)
Quarter: 2015Q4

REPORT INFORMATION
  Report Type: Spontaneous
  Country: US (occurrence: US)
  Receive Date: 20151104
  Receipt Date: 20151104
  Transmission Date: 20160304
  Serious: No
  Sender: FDA-Public Use
  Company Number: US-ELI_LILLY_AND_COMPANY-US201106002637

PATIENT
  Sex: Female

DRUGS (1)
  1. FORTEO [Suspect]
     Active Substance: TERIPARATIDE
     Indication: OSTEOPOROSIS
     Dosage: 20 UG, QD
     Route: 065
     Dates: start: 201104

REACTIONS (8)
  - Dehydration [Unknown]
  - Arthralgia [Unknown]
  - Dry mouth [Unknown]
  - Pain in extremity [Unknown]
  - Bone pain [Unknown]
  - Dysgeusia [Unknown]
  - Blood pressure increased [Unknown]
  - Decreased appetite [Unknown]
